FAERS Safety Report 5800468-X (Version None)
Quarter: 2008Q3

REPORT INFORMATION
  Report Type: 
  Country: None (occurrence: None)
  Receive Date: 20080703
  Receipt Date: 20080626
  Transmission Date: 20090109
  Serious: Yes (Other)
  Sender: FDA-Public Use
  Company Number: A0728552A

PATIENT
  Age: 62 Year
  Sex: Male

DRUGS (8)
  1. ADVAIR DISKUS 100/50 [Suspect]
     Indication: CHRONIC OBSTRUCTIVE PULMONARY DISEASE
     Dosage: 1PUFF PER DAY
     Route: 055
     Dates: end: 20080501
  2. THEOPHYLLINE [Suspect]
     Indication: DRUG USE FOR UNKNOWN INDICATION
     Route: 065
  3. SIMVASTATIN [Concomitant]
  4. WARFARIN SODIUM [Concomitant]
  5. DILTIAZEM HCL [Concomitant]
  6. SPIRIVA [Concomitant]
  7. COMBIVENT [Concomitant]
  8. ALBUTEROL [Concomitant]

REACTIONS (1)
  - HEART RATE INCREASED [None]
